FAERS Safety Report 19816239 (Version 1)
Quarter: 2021Q3

REPORT INFORMATION
  Report Type: Report from Study
  Country: AR (occurrence: AR)
  Receive Date: 20210909
  Receipt Date: 20210909
  Transmission Date: 20211014
  Serious: Yes (Death, Life-Threatening)
  Sender: FDA-Public Use
  Company Number: AR-BIOGEN-2021BI01047422

PATIENT
  Age: 1 Year
  Sex: Male

DRUGS (4)
  1. SPINRAZA [Suspect]
     Active Substance: NUSINERSEN
     Dosage: MAINTENAINCE DOSE
     Route: 037
     Dates: start: 20190510, end: 20200427
  2. SPINRAZA [Suspect]
     Active Substance: NUSINERSEN
     Dosage: 4TH LOADING DOSE
     Route: 037
     Dates: start: 20181029
  3. SPINRAZA [Suspect]
     Active Substance: NUSINERSEN
     Dosage: MAINTENAINCE DOSE
     Route: 037
     Dates: start: 20200828
  4. SPINRAZA [Suspect]
     Active Substance: NUSINERSEN
     Indication: SPINAL MUSCULAR ATROPHY
     Dosage: 1ST THREE LOADING DOSES
     Route: 037
     Dates: start: 20180827, end: 20180927

REACTIONS (2)
  - Prescribed underdose [Recovered/Resolved]
  - Sepsis [Fatal]

NARRATIVE: CASE EVENT DATE: 20190510
